FAERS Safety Report 18593077 (Version 1)
Quarter: 2020Q4

REPORT INFORMATION
  Report Type: Spontaneous
  Country: US (occurrence: US)
  Receive Date: 20201209
  Receipt Date: 20201209
  Transmission Date: 20210114
  Serious: No
  Sender: FDA-Public Use
  Company Number: US-BION-009140

PATIENT
  Sex: Female

DRUGS (2)
  1. BIONPHARMA^S VITAMIN D UNSPECIFIED [Suspect]
     Active Substance: ERGOCALCIFEROL
     Indication: PRODUCT USED FOR UNKNOWN INDICATION
     Dosage: STRENGTH 50000 IU
     Dates: start: 202008
  2. BIONPHARMA^S VITAMIN D UNSPECIFIED [Suspect]
     Active Substance: ERGOCALCIFEROL
     Indication: PRODUCT USED FOR UNKNOWN INDICATION
     Dosage: STRENGTH 50000 IU
     Dates: start: 202003

REACTIONS (2)
  - Product physical issue [Unknown]
  - Poor quality product administered [Not Recovered/Not Resolved]

NARRATIVE: CASE EVENT DATE: 202003
